FAERS Safety Report 13257607 (Version 2)
Quarter: 2019Q1

REPORT INFORMATION
  Report Type: Spontaneous
  Country: JP (occurrence: JP)
  Receive Date: 20170221
  Receipt Date: 20190315
  Transmission Date: 20190417
  Serious: Yes (Death, Hospitalization)
  Sender: FDA-Public Use
  Company Number: PHJP2017JP000456

PATIENT
  Age: 82 Year
  Sex: Male

DRUGS (3)
  1. EXELON PATCH [Suspect]
     Active Substance: RIVASTIGMINE
     Indication: DEMENTIA ALZHEIMER^S TYPE
     Dosage: 4.6 MG, QD PATCH5(CM2)
     Route: 062
     Dates: start: 20170108
  2. RIVASTACH [Suspect]
     Active Substance: RIVASTIGMINE
     Dosage: 4.6 MG, QD
     Route: 062
     Dates: end: 20170107
  3. RIVASTACH [Suspect]
     Active Substance: RIVASTIGMINE
     Indication: DEMENTIA ALZHEIMER^S TYPE
     Dosage: 3.8 MG, QD APPLIED 2 PATCHES OF 1.9 MG(RIVASTIGMINE BASE 4.5 MG, PATCH 2.5 CM2)
     Route: 062

REACTIONS (5)
  - Decreased appetite [Unknown]
  - Wrong technique in product usage process [Unknown]
  - Marasmus [Fatal]
  - Dysphagia [Unknown]
  - Feeding disorder [Unknown]

NARRATIVE: CASE EVENT DATE: 20170104
